FAERS Safety Report 6588012-3 (Version None)
Quarter: 2010Q1

REPORT INFORMATION
  Report Type: 
  Country: None (occurrence: None)
  Receive Date: 20100218
  Receipt Date: 20100210
  Transmission Date: 20100710
  Serious: Yes (Hospitalization)
  Sender: FDA-Public Use
  Company Number: IT-ABBOTT-10P-083-0625262-00

PATIENT

DRUGS (1)
  1. KLACID I.V. [Suspect]
     Indication: PNEUMONIA
     Route: 041
     Dates: start: 20100201

REACTIONS (1)
  - INJECTION SITE THROMBOSIS [None]
